FAERS Safety Report 11745476 (Version 1)
Quarter: 2015Q4

REPORT INFORMATION
  Report Type: Spontaneous
  Country: US (occurrence: None)
  Receive Date: 20151116
  Receipt Date: 20151116
  Transmission Date: 20160304
  Serious: Yes (Hospitalization)
  Sender: FDA-Public Use
  Company Number: None

PATIENT
  Age: 60 Year
  Sex: Male
  Weight: 86.64 kg

DRUGS (8)
  1. LISINOPRIL. [Concomitant]
     Active Substance: LISINOPRIL
  2. METFORMIN [Concomitant]
     Active Substance: METFORMIN HYDROCHLORIDE
  3. LEVEMIR [Concomitant]
     Active Substance: INSULIN DETEMIR
  4. VICTOZA [Suspect]
     Active Substance: LIRAGLUTIDE
     Indication: BLOOD GLUCOSE INCREASED
     Dates: start: 20151012, end: 20151022
  5. DIGOXIN. [Concomitant]
     Active Substance: DIGOXIN
  6. SOTALOL. [Concomitant]
     Active Substance: SOTALOL
  7. LORAZEPAM. [Concomitant]
     Active Substance: LORAZEPAM
  8. WARFARIN [Concomitant]
     Active Substance: WARFARIN

REACTIONS (6)
  - Anxiety [None]
  - Myocardial infarction [None]
  - Nausea [None]
  - Pancreatitis [None]
  - Vision blurred [None]
  - Palpitations [None]

NARRATIVE: CASE EVENT DATE: 20151022
